FAERS Safety Report 9257287 (Version 3)
Quarter: 2013Q2

REPORT INFORMATION
  Report Type: Spontaneous
  Country: JP (occurrence: JP)
  Receive Date: 20130426
  Receipt Date: 20130528
  Transmission Date: 20140414
  Serious: Yes (Life-Threatening, Hospitalization, Other)
  Sender: FDA-Public Use
  Company Number: PHHY2013JP041025

PATIENT
  Age: 80 Year
  Sex: Male
  Weight: 54 kg

DRUGS (2)
  1. FAMVIR [Suspect]
     Indication: HERPES ZOSTER
     Dosage: 500 MG, TID
     Route: 048
     Dates: start: 20130415, end: 20130416
  2. LOXONIN [Suspect]
     Indication: MUSCULOSKELETAL PAIN
     Dosage: 60 MG, TID
     Dates: start: 20130410, end: 20130416

REACTIONS (3)
  - Renal failure acute [Recovering/Resolving]
  - Liver disorder [Recovering/Resolving]
  - Rhabdomyolysis [Recovering/Resolving]
